FAERS Safety Report 5447300-4 (Version None)
Quarter: 2007Q3

REPORT INFORMATION
  Report Type: 
  Country: None (occurrence: None)
  Receive Date: 20070910
  Receipt Date: 20070905
  Transmission Date: 20080115
  Serious: Yes (Other)
  Sender: FDA-Public Use
  Company Number: DE-AVENTIS-200712256DE

PATIENT
  Sex: Female
  Weight: 104 kg

DRUGS (2)
  1. ENOXAPARIN SODIUM [Suspect]
     Indication: THROMBOSIS PROPHYLAXIS
     Route: 058
     Dates: start: 20070714
  2. ENOXAPARIN SODIUM [Suspect]
     Route: 058
     Dates: start: 20070803

REACTIONS (2)
  - SKIN ATROPHY [None]
  - TOXIC EPIDERMAL NECROLYSIS [None]
